FAERS Safety Report 8597454-6 (Version None)
Quarter: 2012Q3

REPORT INFORMATION
  Report Type: 
  Country: None (occurrence: None)
  Receive Date: 20120816
  Receipt Date: 20120807
  Transmission Date: 20120928
  Serious: Yes (Hospitalization)
  Sender: FDA-Public Use
  Company Number: JP-JNJFOC-20110910733

PATIENT
  Sex: Male

DRUGS (8)
  1. TOPIRAMATE [Suspect]
     Route: 048
     Dates: start: 20101229, end: 20110121
  2. DEPAKENE [Concomitant]
     Indication: EPILEPSY
     Route: 048
     Dates: start: 20100525
  3. TOPIRAMATE [Suspect]
     Route: 048
     Dates: start: 20101215, end: 20101221
  4. CALBLOCK [Concomitant]
     Route: 048
     Dates: start: 20090517, end: 20110202
  5. TOPIRAMATE [Suspect]
     Route: 048
     Dates: start: 20101208, end: 20101214
  6. TOPIRAMATE [Suspect]
     Indication: EPILEPSY
     Route: 048
     Dates: start: 20101222, end: 20101228
  7. SYMMETREL [Concomitant]
     Route: 048
     Dates: start: 20091210, end: 20110202
  8. SERMION [Concomitant]
     Route: 048
     Dates: start: 20101026, end: 20110202

REACTIONS (5)
  - HYPOPHAGIA [None]
  - PLATELET COUNT DECREASED [None]
  - DECREASED APPETITE [None]
  - ILEUS [None]
  - HYPERNATRAEMIA [None]
